FAERS Safety Report 4472109-8 (Version None)
Quarter: 2004Q4

REPORT INFORMATION
  Report Type: 
  Country: None (occurrence: None)
  Receive Date: 20041012
  Receipt Date: 20041002
  Transmission Date: 20050328
  Serious: Yes (Hospitalization)
  Sender: FDA-Public Use
  Company Number: BR-MERCK-0410BRA00086

PATIENT
  Age: 46 Year
  Sex: Female

DRUGS (6)
  1. BETAMETHASONE [Concomitant]
     Route: 065
  2. DEFLAZACORT [Concomitant]
     Indication: ARTHRITIS
     Route: 065
     Dates: start: 19920101
  3. VIOXX [Suspect]
     Indication: RHEUMATOID ARTHRITIS
     Route: 048
     Dates: start: 19990101
  4. VIOXX [Suspect]
     Route: 048
     Dates: start: 19990101
  5. VIOXX [Suspect]
     Indication: PROPHYLAXIS
     Route: 048
     Dates: start: 19990101
  6. VIOXX [Suspect]
     Route: 048
     Dates: start: 19990101

REACTIONS (2)
  - CONVULSION [None]
  - RHEUMATOID ARTHRITIS [None]
